FAERS Safety Report 5205091-6 (Version None)
Quarter: 2007Q1

REPORT INFORMATION
  Report Type: 
  Country: None (occurrence: None)
  Receive Date: 20070108
  Receipt Date: 20061228
  Transmission Date: 20070707
  Serious: Yes (Other)
  Sender: FDA-Public Use
  Company Number: GXKR2006PL08540

PATIENT
  Age: 6 Year
  Sex: Male

DRUGS (1)
  1. AMOKSIKLAV (NGX) (AMOXICILLIN, CLAVULANATE) TABLET, 625MG [Suspect]
     Indication: UPPER RESPIRATORY TRACT INFECTION
     Dosage: 625 MG, BID, ORAL
     Route: 048
     Dates: start: 20061227, end: 20061227

REACTIONS (4)
  - EXCORIATION [None]
  - PETECHIAE [None]
  - PRURITUS [None]
  - RASH MACULAR [None]
